FAERS Safety Report 7490660-3 (Version None)
Quarter: 2011Q2

REPORT INFORMATION
  Report Type: 
  Country: None (occurrence: None)
  Receive Date: 20110519
  Receipt Date: 20110513
  Transmission Date: 20111010
  Serious: Yes (Hospitalization)
  Sender: FDA-Public Use
  Company Number: KR-PFIZER INC-2010139000

PATIENT
  Age: 66 Year
  Sex: Male

DRUGS (6)
  1. SUNITINIB MALATE [Suspect]
     Indication: RENAL CELL CARCINOMA
     Dosage: 50 MG, 1X/DAY
     Route: 048
     Dates: start: 20090827, end: 20101019
  2. CARVEDILOL [Concomitant]
  3. IRBESARTAN [Concomitant]
  4. AMLODIPINE [Concomitant]
  5. LABETALOL HYDROCHLORIDE [Concomitant]
     Dosage: UNK
     Dates: start: 20100924, end: 20100930
  6. NICARDIPINE [Concomitant]
     Dosage: UNK
     Dates: start: 20100930

REACTIONS (1)
  - AORTIC DISSECTION [None]
